FAERS Safety Report 17705325 (Version 1)
Quarter: 2020Q2

REPORT INFORMATION
  Report Type: Spontaneous
  Country: US (occurrence: US)
  Receive Date: 20200424
  Receipt Date: 20200424
  Transmission Date: 20200714
  Serious: Yes (Death)
  Sender: FDA-Public Use
  Company Number: US-ASTRAZENECA-2020SE53976

PATIENT
  Sex: Female

DRUGS (1)
  1. BYETTA [Suspect]
     Active Substance: EXENATIDE
     Route: 065

REACTIONS (4)
  - Malaise [Unknown]
  - Death [Fatal]
  - Eating disorder [Unknown]
  - Weight decreased [Unknown]
